FAERS Safety Report 13069295 (Version 1)
Quarter: 2016Q4

REPORT INFORMATION
  Report Type: Spontaneous
  Country: JP (occurrence: JP)
  Receive Date: 20161228
  Receipt Date: 20161228
  Transmission Date: 20170207
  Serious: Yes (Other)
  Sender: FDA-Public Use
  Company Number: JP-PFIZER INC-2016592287

PATIENT
  Age: 9 Decade
  Sex: Female

DRUGS (5)
  1. HYDROCORTISONE. [Interacting]
     Active Substance: HYDROCORTISONE
     Dosage: TAPERED
  2. METHYLPREDNISOLONE. [Interacting]
     Active Substance: METHYLPREDNISOLONE
     Indication: STRESS
     Dosage: 40 MG, DAILY
  3. PHENYTOIN. [Interacting]
     Active Substance: PHENYTOIN
     Indication: CONVULSION PROPHYLAXIS
  4. METHYLPREDNISOLONE. [Interacting]
     Active Substance: METHYLPREDNISOLONE
     Dosage: 30 MG, DAILY
  5. HYDROCORTISONE. [Suspect]
     Active Substance: HYDROCORTISONE
     Indication: STRESS
     Dosage: 100 MG, 3X/DAY

REACTIONS (4)
  - Interstitial lung disease [Unknown]
  - Drug interaction [Unknown]
  - Condition aggravated [Unknown]
  - Drug effect decreased [Unknown]
